FAERS Safety Report 7168205-7 (Version None)
Quarter: 2010Q4

REPORT INFORMATION
  Report Type: 
  Country: None (occurrence: None)
  Receive Date: 20101216
  Receipt Date: 20101207
  Transmission Date: 20110411
  Serious: Yes (Other)
  Sender: FDA-Public Use
  Company Number: BR-PFIZER INC-2010160315

PATIENT
  Age: 61 Year
  Sex: Female

DRUGS (1)
  1. XALATAN [Suspect]
     Indication: GLAUCOMA
     Dosage: 3 UG, 1X/DAY (1 DROP IN EACH EYE ONCE DAILY)
     Route: 047
     Dates: start: 20031129

REACTIONS (2)
  - HYPERGLYCAEMIA [None]
  - VISUAL ACUITY REDUCED [None]
